FAERS Safety Report 5086941-3 (Version None)
Quarter: 2006Q3

REPORT INFORMATION
  Report Type: 
  Country: None (occurrence: None)
  Receive Date: 20060818
  Receipt Date: 20060807
  Transmission Date: 20061208
  Serious: Yes (Other)
  Sender: FDA-Public Use
  Company Number: 2006097636

PATIENT
  Age: 57 Year
  Sex: Female
  Weight: 62.1428 kg

DRUGS (7)
  1. LYRICA [Suspect]
     Indication: POST HERPETIC NEURALGIA
     Dosage: 100 MG (50 MG,2 IN 1 D)
     Dates: start: 20060601
  2. SYNTHROID [Concomitant]
  3. ZELNORM [Concomitant]
  4. ESTRADIOL INJ [Concomitant]
  5. FOLIC ACID [Concomitant]
  6. VICODIN [Concomitant]
  7. CALCIUM GLUCONATE [Concomitant]

REACTIONS (10)
  - CONFUSIONAL STATE [None]
  - DISEASE RECURRENCE [None]
  - DYSPHAGIA [None]
  - GOITRE [None]
  - HERPES SIMPLEX [None]
  - MEMORY IMPAIRMENT [None]
  - PAIN [None]
  - PHARYNGOLARYNGEAL PAIN [None]
  - THINKING ABNORMAL [None]
  - THYROID PAIN [None]
